FAERS Safety Report 8509365-2 (Version None)
Quarter: 2012Q3

REPORT INFORMATION
  Report Type: 
  Country: None (occurrence: None)
  Receive Date: 20120713
  Receipt Date: 20110201
  Transmission Date: 20120928
  Serious: Yes (Other)
  Sender: FDA-Public Use
  Company Number: ZA-ROCHE-1087129

PATIENT

DRUGS (3)
  1. PREDNISONE [Concomitant]
  2. CELLCEPT [Suspect]
     Indication: HEART TRANSPLANT
     Route: 048
  3. PROGRAF [Concomitant]

REACTIONS (2)
  - ARTHRITIS [None]
  - THROMBOSIS [None]
